FAERS Safety Report 6984606-1 (Version None)
Quarter: 2010Q3

REPORT INFORMATION
  Report Type: 
  Country: None (occurrence: None)
  Receive Date: 20100915
  Receipt Date: 20100902
  Transmission Date: 20110219
  Serious: Yes (Other)
  Sender: FDA-Public Use
  Company Number: US-PFIZER INC-2004083668

PATIENT
  Sex: Male
  Weight: 77.098 kg

DRUGS (7)
  1. GLUCOTROL [Suspect]
     Indication: TYPE 2 DIABETES MELLITUS
     Dosage: 2.5 MG, 1X/DAY
     Route: 048
     Dates: start: 20010101, end: 20010101
  2. GLUCOTROL [Suspect]
     Dosage: UNK
     Dates: start: 20100902
  3. GLUCOTROL XL [Suspect]
     Indication: TYPE 2 DIABETES MELLITUS
     Dosage: 5 MG, DAILY
     Route: 048
     Dates: start: 20010101
  4. SIMVASTATIN [Concomitant]
     Route: 048
  5. METFORMIN HYDROCHLORIDE [Concomitant]
     Indication: TYPE 2 DIABETES MELLITUS
     Route: 048
  6. METFORMIN HYDROCHLORIDE [Concomitant]
     Dosage: UNK
  7. LANTUS [Concomitant]
     Indication: TYPE 2 DIABETES MELLITUS
     Dosage: UNK

REACTIONS (4)
  - DRUG INEFFECTIVE [None]
  - EXPIRED DRUG ADMINISTERED [None]
  - HYPERGLYCAEMIA [None]
  - HYPOGLYCAEMIA [None]
